FAERS Safety Report 10190048 (Version 1)
Quarter: 2014Q2

REPORT INFORMATION
  Report Type: Spontaneous
  Country: US (occurrence: US)
  Receive Date: 20140522
  Receipt Date: 20140522
  Transmission Date: 20141212
  Serious: Yes (Other)
  Sender: FDA-Public Use
  Company Number: US-AMGEN-USASP2014036464

PATIENT
  Age: 76 Year
  Sex: Female

DRUGS (3)
  1. PROLIA [Suspect]
     Indication: OSTEOPOROSIS POSTMENOPAUSAL
     Dosage: UNK
     Route: 065
     Dates: end: 2013
  2. CRESTOR [Concomitant]
     Dosage: 20 MG, UNK
     Route: 065
  3. VITAMIN D2 [Concomitant]
     Dosage: 50000 UNIT, QWK

REACTIONS (18)
  - General physical health deterioration [Unknown]
  - Arrhythmia [Unknown]
  - Ejection fraction abnormal [Unknown]
  - Sick sinus syndrome [Unknown]
  - Neck injury [Unknown]
  - Head injury [Unknown]
  - Coronary artery disease [Unknown]
  - Renal cancer [Unknown]
  - Adrenal gland cancer [Unknown]
  - Thyroid neoplasm [Unknown]
  - Heart rate increased [Unknown]
  - Renal impairment [Unknown]
  - Renal tubular acidosis [Unknown]
  - Muscle spasms [Unknown]
  - Gait disturbance [Unknown]
  - Blood parathyroid hormone abnormal [Unknown]
  - Bone loss [Unknown]
  - Pain in extremity [Unknown]
